FAERS Safety Report 12902664 (Version 6)
Quarter: 2017Q2

REPORT INFORMATION
  Report Type: Spontaneous
  Country: US (occurrence: US)
  Receive Date: 20161102
  Receipt Date: 20170425
  Transmission Date: 20170830
  Serious: Yes (Other)
  Sender: FDA-Public Use
  Company Number: US-GLAXOSMITHKLINE-US2016GSK160422

PATIENT
  Age: 52 Year
  Sex: Female
  Weight: 63.95 kg

DRUGS (6)
  1. BENLYSTA [Suspect]
     Active Substance: BELIMUMAB
     Dosage: UNK
  2. VENTOLIN [Suspect]
     Active Substance: ALBUTEROL SULFATE
     Indication: DYSPNOEA
  3. CELLCEPT [Concomitant]
     Active Substance: MYCOPHENOLATE MOFETIL\MYCOPHENOLATE MOFETIL HYDROCHLORIDE
  4. BENLYSTA [Suspect]
     Active Substance: BELIMUMAB
     Indication: SYSTEMIC LUPUS ERYTHEMATOSUS
     Dosage: 10 MG/KG, CYC
     Route: 042
     Dates: start: 20150122, end: 20160922
  5. BENLYSTA [Suspect]
     Active Substance: BELIMUMAB
     Dosage: UNK
  6. MEDROL [Suspect]
     Active Substance: METHYLPREDNISOLONE
     Indication: DYSPNOEA

REACTIONS (11)
  - Respiratory disorder [Unknown]
  - Upper respiratory tract congestion [Unknown]
  - Abdominal distension [Unknown]
  - Gastrointestinal hypomotility [Unknown]
  - Infusion related reaction [Unknown]
  - Painful respiration [Unknown]
  - Cough [Unknown]
  - Throat tightness [Unknown]
  - Chest discomfort [Not Recovered/Not Resolved]
  - Lyme disease [Unknown]
  - Musculoskeletal pain [Not Recovered/Not Resolved]

NARRATIVE: CASE EVENT DATE: 201608
